FAERS Safety Report 4597291-3 (Version None)
Quarter: 2005Q1

REPORT INFORMATION
  Report Type: 
  Country: None (occurrence: None)
  Receive Date: 20050303
  Receipt Date: 20041209
  Transmission Date: 20050727
  Serious: No
  Sender: FDA-Public Use
  Company Number: US-GLAXOSMITHKLINE-A0536767A

PATIENT
  Age: 15 Year
  Sex: Female

DRUGS (2)
  1. DEXEDRINE [Suspect]
     Indication: ATTENTION DEFICIT/HYPERACTIVITY DISORDER
     Dosage: 15MG PER DAY
     Route: 048
     Dates: start: 20041101
  2. NO CONCURRENT MEDICATION [Concomitant]

REACTIONS (1)
  - DRY MOUTH [None]
